FAERS Safety Report 7984662-8 (Version None)
Quarter: 2011Q4

REPORT INFORMATION
  Report Type: 
  Country: None (occurrence: None)
  Receive Date: 20111216
  Receipt Date: 20111215
  Transmission Date: 20120403
  Serious: Yes (Death, Other)
  Sender: FDA-Public Use
  Company Number: JP-BAYER-2011-120838

PATIENT
  Age: 76 Year
  Sex: Male
  Weight: 59.864 kg

DRUGS (11)
  1. NEXAVAR [Suspect]
     Dosage: 200 MG, QD
     Route: 048
     Dates: start: 20100929, end: 20101124
  2. NEXAVAR [Suspect]
     Dosage: 200 MG, QOD
     Route: 048
     Dates: start: 20101215, end: 20101229
  3. URSO 250 [Concomitant]
     Dosage: 600 MG, QD
     Route: 048
  4. GASTROM [Concomitant]
     Dosage: 3 G, QD
     Route: 048
  5. KERATINAMIN [Concomitant]
     Indication: PROPHYLAXIS
     Dosage: UNK
     Route: 061
     Dates: start: 20100623
  6. NEXAVAR [Suspect]
     Indication: HEPATIC NEOPLASM MALIGNANT
     Dosage: 400 MG, QD
     Route: 048
     Dates: start: 20100623, end: 20100728
  7. LASIX [Concomitant]
     Dosage: 20 MG, QD
     Route: 048
  8. LANSOPRAZOLE [Concomitant]
     Dosage: 15 MG, QD
     Route: 048
  9. NEXAVAR [Suspect]
     Dosage: 200 MG, QD
     Route: 048
     Dates: start: 20100804, end: 20100908
  10. ALDACTONE [Concomitant]
     Dosage: 25 MG, QD
     Route: 048
  11. LIVACT [Concomitant]
     Dosage: 12.45 G, QD
     Route: 048

REACTIONS (4)
  - HEPATIC NEOPLASM MALIGNANT [None]
  - DIARRHOEA [None]
  - MALAISE [None]
  - DECREASED APPETITE [None]
